FAERS Safety Report 9089794 (Version 1)
Quarter: 2013Q1

REPORT INFORMATION
  Report Type: Spontaneous
  Country: US (occurrence: US)
  Receive Date: 20130201
  Receipt Date: 20130201
  Transmission Date: 20140127
  Serious: No
  Sender: FDA-Public Use
  Company Number: US-GALDERMA-US-GDP-12414715

PATIENT
  Sex: Female

DRUGS (2)
  1. EPIDUO [Suspect]
     Indication: PRODUCT USED FOR UNKNOWN INDICATION
     Dosage: UNKNOWN
     Route: 061
     Dates: start: 2012
  2. CETAPHIL [Suspect]
     Indication: PRODUCT USED FOR UNKNOWN INDICATION
     Dosage: UNKNOWN
     Route: 061
     Dates: start: 20120803

REACTIONS (4)
  - Erythema [Unknown]
  - Skin irritation [Unknown]
  - Dry skin [Unknown]
  - Skin burning sensation [Unknown]
